FAERS Safety Report 14702538 (Version 2)
Quarter: 2018Q4

REPORT INFORMATION
  Report Type: Spontaneous
  Country: FR (occurrence: FR)
  Receive Date: 20180401
  Receipt Date: 20181026
  Transmission Date: 20190204
  Serious: Yes (Other)
  Sender: FDA-Public Use
  Company Number: FR-MERCK KGAA-2044852

PATIENT
  Age: 64 Year
  Sex: Female
  Weight: 55 kg

DRUGS (1)
  1. EUTHYROX [Suspect]
     Active Substance: LEVOTHYROXINE SODIUM
     Indication: PRODUCT USED FOR UNKNOWN INDICATION

REACTIONS (36)
  - Psychiatric symptom [None]
  - Blood cholesterol increased [None]
  - Alopecia [None]
  - Arthralgia [None]
  - Cough [None]
  - Musculoskeletal chest pain [None]
  - Blood thyroid stimulating hormone increased [None]
  - Haematocrit increased [None]
  - Palpitations [None]
  - Insomnia [None]
  - Tremor [None]
  - Muscle spasms [None]
  - Suicidal ideation [None]
  - Choking [None]
  - Fatigue [None]
  - Loss of personal independence in daily activities [None]
  - White blood cell count increased [None]
  - Gait disturbance [None]
  - Haemoglobin increased [None]
  - Hot flush [None]
  - Pruritus [None]
  - Hypoaesthesia [None]
  - Dysgraphia [None]
  - Anxiety [None]
  - Gait disturbance [None]
  - Headache [None]
  - Negative thoughts [None]
  - Myalgia [None]
  - Weight increased [None]
  - Premature ageing [None]
  - Pain in extremity [None]
  - Hyperhidrosis [None]
  - Dizziness [None]
  - Feeling guilty [None]
  - Blood potassium increased [None]
  - Thyroxine increased [None]

NARRATIVE: CASE EVENT DATE: 20170207
